FAERS Safety Report 8669659 (Version 2)
Quarter: 2013Q4

REPORT INFORMATION
  Report Type: Report from Study
  Country: TR (occurrence: TR)
  Receive Date: 20120718
  Receipt Date: 20131031
  Transmission Date: 20140711
  Serious: Yes (Other)
  Sender: FDA-Public Use
  Company Number: TR-009507513-1207TUR003881

PATIENT
  Sex: Female

DRUGS (3)
  1. GONAPHENE [Suspect]
     Indication: OVULATION INDUCTION
     Dosage: 50-150 MG
  2. PUREGON [Suspect]
     Indication: OVULATION INDUCTION
     Dosage: 75 IU - 675 IU
  3. PREGNYL [Suspect]
     Indication: OVULATION INDUCTION
     Dosage: 10000 IU

REACTIONS (3)
  - Ectopic pregnancy [Unknown]
  - Drug ineffective [Unknown]
  - Maternal exposure during pregnancy [Unknown]
